FAERS Safety Report 13257620 (Version 1)
Quarter: 2017Q1

REPORT INFORMATION
  Report Type: Spontaneous
  Country: FR (occurrence: FR)
  Receive Date: 20170221
  Receipt Date: 20170221
  Transmission Date: 20170428
  Serious: Yes (Hospitalization)
  Sender: FDA-Public Use
  Company Number: FR-BRISTOL-MYERS SQUIBB COMPANY-BMS-2017-013645

PATIENT
  Age: 66 Year
  Sex: Male

DRUGS (5)
  1. BICNU [Suspect]
     Active Substance: CARMUSTINE
     Indication: LYMPHOMA
     Dosage: UNK
     Route: 065
     Dates: start: 20161123
  2. ZEVALIN [Suspect]
     Active Substance: IBRITUMOMAB TIUXETAN
     Indication: LYMPHOMA
     Dosage: UNK
     Route: 065
     Dates: start: 20161123
  3. ALKERAN [Suspect]
     Active Substance: MELPHALAN
     Indication: LYMPHOMA
     Dosage: UNK
     Route: 065
     Dates: start: 20161123
  4. CYTARABINE EG [Suspect]
     Active Substance: CYTARABINE
     Indication: LYMPHOMA
     Dosage: UNK
     Route: 065
     Dates: start: 20161123
  5. ETOPOPHOS [Suspect]
     Active Substance: ETOPOSIDE PHOSPHATE
     Indication: LYMPHOMA
     Dosage: UNK MG, UNK
     Route: 065
     Dates: start: 20161123

REACTIONS (2)
  - Hypertension [Recovered/Resolved]
  - Tachycardia [Recovered/Resolved]

NARRATIVE: CASE EVENT DATE: 20161123
